FAERS Safety Report 17729985 (Version 3)
Quarter: 2020Q2

REPORT INFORMATION
  Report Type: Report from Study
  Country: GB (occurrence: GB)
  Receive Date: 20200430
  Receipt Date: 20200611
  Transmission Date: 20200714
  Serious: Yes (Other)
  Sender: FDA-Public Use
  Company Number: GB-SAMSUNG BIOEPIS-SB-2020-13329

PATIENT
  Age: 56 Year
  Sex: Female

DRUGS (1)
  1. IMRALDI [Suspect]
     Active Substance: ADALIMUMAB
     Indication: COLITIS ULCERATIVE
     Dosage: WEEK ZERO
     Route: 058
     Dates: start: 20200320

REACTIONS (5)
  - Malaise [Unknown]
  - Pyrexia [Recovering/Resolving]
  - Suspected COVID-19 [Unknown]
  - Inflammatory marker increased [Unknown]
  - Colitis ulcerative [Recovering/Resolving]
